FAERS Safety Report 22585813 (Version 1)
Quarter: 2023Q2

REPORT INFORMATION
  Report Type: Spontaneous
  Country: NL (occurrence: NL)
  Receive Date: 20230610
  Receipt Date: 20230610
  Transmission Date: 20230721
  Serious: Yes (Other)
  Sender: FDA-Public Use
  Company Number: None

PATIENT
  Sex: Female
  Weight: 75 kg

DRUGS (10)
  1. PANTOPRAZOLE SODIUM [Suspect]
     Active Substance: PANTOPRAZOLE SODIUM
     Indication: Regurgitation
     Dosage: 40 MG, Q12H (2 KEER PER DAG 1 TABLET)
     Route: 065
     Dates: start: 20230116
  2. PANTOPRAZOLE SODIUM [Suspect]
     Active Substance: PANTOPRAZOLE SODIUM
     Indication: Gastritis
  3. LEVOFLOXACIN [Suspect]
     Active Substance: LEVOFLOXACIN
     Indication: Helicobacter gastritis
     Dosage: 500 MG, Q12H (2 KEER PER DAG 1 TABLET)
     Route: 065
     Dates: start: 20230412
  4. METRONIDAZOLE [Suspect]
     Active Substance: METRONIDAZOLE
     Indication: Helicobacter gastritis
     Dosage: 500 MG, Q12H (2 KEER PER DAG 1 TABLET)
     Route: 065
     Dates: start: 20230412
  5. HYDROXYCHLOROQUINE [Concomitant]
     Active Substance: HYDROXYCHLOROQUINE
     Indication: Product used for unknown indication
     Dosage: 200 MG (OMHULDE TABLET)
     Route: 065
  6. SALAZOPYRINE [Concomitant]
     Active Substance: SULFASALAZINE
     Indication: Product used for unknown indication
     Dosage: 500 MG, MAAGSAPRESISTENTE TABLET
     Route: 065
  7. VOLCOLON [Concomitant]
     Indication: Product used for unknown indication
     Dosage: 3.6 G, ZAKJE (GRANULAAT) (PLANTAGO OVATA GRANULAAT 3.6G / VOLCOLON GRANULAAT SUIKERVRIJ 4G IN SACHET
     Route: 065
  8. ADALIMUMAB [Concomitant]
     Active Substance: ADALIMUMAB
     Indication: Product used for unknown indication
     Dosage: INJECTIEVLOEISTOF, WWSP 0.8ML
     Route: 065
  9. ARTELAC [Concomitant]
     Indication: Product used for unknown indication
     Dosage: OOGDRUPPELS, FLACON 10ML
     Route: 065
  10. POLYETHYLENE GLYCOLS [Concomitant]
     Active Substance: POLYETHYLENE GLYCOLS
     Indication: Product used for unknown indication
     Dosage: POEDER VOOR DRANK, ZOUTEN PDR V DRANK (MOVIC/MOLAX/LAXT/GEN)
     Route: 065

REACTIONS (2)
  - Rheumatoid arthritis [Recovering/Resolving]
  - Arthralgia [Recovering/Resolving]
